FAERS Safety Report 23756288 (Version 1)
Quarter: 2024Q2

REPORT INFORMATION
  Report Type: Spontaneous
  Country: US (occurrence: None)
  Receive Date: 20240417
  Receipt Date: 20240417
  Transmission Date: 20240716
  Serious: No
  Sender: FDA-Public Use
  Company Number: None

PATIENT
  Age: 68 Year
  Sex: Male
  Weight: 81.69 kg

DRUGS (1)
  1. YESCARTA [Suspect]
     Active Substance: AXICABTAGENE CILOLEUCEL
     Dosage: 1 TOT- TOTAL ONCE INTRAVENOUS?
     Route: 042
     Dates: start: 20240306, end: 20240306

REACTIONS (8)
  - Cytokine release syndrome [None]
  - Immune effector cell-associated neurotoxicity syndrome [None]
  - Hydrocephalus [None]
  - Acute respiratory failure [None]
  - Pleural effusion [None]
  - Pericardial effusion [None]
  - Portal hypertension [None]
  - Haemorrhage [None]

NARRATIVE: CASE EVENT DATE: 20240413
